FAERS Safety Report 9200764 (Version 1)
Quarter: 2013Q1

REPORT INFORMATION
  Report Type: Spontaneous
  Country: GB (occurrence: None)
  Receive Date: 20130327
  Receipt Date: 20130327
  Transmission Date: 20140127
  Serious: Yes (Hospitalization, Other)
  Sender: FDA-Public Use
  Company Number: AUR-APL-2013-02468

PATIENT
  Age: 35 Year
  Sex: Male
  Weight: 96 kg

DRUGS (2)
  1. SERTRALINE (SERTRALINE) (SERTRALINE) [Suspect]
     Indication: DEPRESSION
     Route: 048
     Dates: start: 20130226, end: 20130301
  2. COLCHICINE (COLCHICI NE) [Concomitant]

REACTIONS (9)
  - Hyperhidrosis [None]
  - Malaise [None]
  - Chest pain [None]
  - Myalgia [None]
  - Pain in extremity [None]
  - Dyskinesia [None]
  - Insomnia [None]
  - Urine output decreased [None]
  - Electrocardiogram ST segment elevation [None]
